FAERS Safety Report 6381465-5 (Version None)
Quarter: 2009Q3

REPORT INFORMATION
  Report Type: 
  Country: None (occurrence: None)
  Receive Date: 20090929
  Receipt Date: 20090702
  Transmission Date: 20100115
  Serious: No
  Sender: FDA-Public Use
  Company Number: US-ALLERGAN-0909294US

PATIENT
  Sex: Male

DRUGS (1)
  1. BLEPHAMIDE [Suspect]
     Indication: HORDEOLUM
     Dosage: UNK, UNKNOWN
     Route: 047
     Dates: start: 20090601

REACTIONS (1)
  - EYE SWELLING [None]
